FAERS Safety Report 17195271 (Version 1)
Quarter: 2019Q4

REPORT INFORMATION
  Report Type: Spontaneous
  Country: ES (occurrence: ES)
  Receive Date: 20191224
  Receipt Date: 20191224
  Transmission Date: 20200122
  Serious: Yes (Death, Other)
  Sender: FDA-Public Use
  Company Number: ES-ALKEM LABORATORIES LIMITED-ES-ALKEM-2019-04592

PATIENT
  Age: 70 Year
  Sex: Male

DRUGS (3)
  1. PREDNISONE. [Suspect]
     Active Substance: PREDNISONE
     Indication: IMMUNOSUPPRESSION
     Dosage: 20 MILLIGRAM, EVERY 24 HOURS
     Route: 065
  2. TACROLIMUS. [Suspect]
     Active Substance: TACROLIMUS
     Indication: IMMUNOSUPPRESSION
     Dosage: 5 MILLIGRAM, EVERY 24 HOURS
     Route: 065
  3. MYCOPHENOLATE MOFETIL. [Suspect]
     Active Substance: MYCOPHENOLATE MOFETIL
     Indication: IMMUNOSUPPRESSION
     Dosage: 500 MILLIGRAM, EVERY 12 HOURS
     Route: 065

REACTIONS (7)
  - Infective uveitis [Unknown]
  - Postoperative wound infection [Unknown]
  - Cytomegalovirus infection [Unknown]
  - Encephalitis [Unknown]
  - Escherichia infection [Unknown]
  - Staphylococcal infection [Unknown]
  - Scedosporium infection [Fatal]
